FAERS Safety Report 6546292-4 (Version None)
Quarter: 2010Q1

REPORT INFORMATION
  Report Type: 
  Country: None (occurrence: None)
  Receive Date: 20100122
  Receipt Date: 20100113
  Transmission Date: 20100710
  Serious: Yes (Hospitalization, Other)
  Sender: FDA-Public Use
  Company Number: FR-ROCHE-671503

PATIENT
  Age: 19 Year
  Sex: Male

DRUGS (5)
  1. CELLCEPT [Suspect]
     Route: 048
     Dates: start: 20050601, end: 20091127
  2. PROGRAF [Suspect]
     Route: 048
     Dates: start: 20070206, end: 20091202
  3. CORTANCYL [Concomitant]
  4. RENITEC [Concomitant]
     Indication: DRUG USE FOR UNKNOWN INDICATION
  5. NEORAL [Concomitant]
     Dates: end: 20070206

REACTIONS (6)
  - ANAEMIA [None]
  - CONVULSION [None]
  - DIARRHOEA [None]
  - LOSS OF CONSCIOUSNESS [None]
  - PSYCHOMOTOR RETARDATION [None]
  - STRABISMUS [None]
